FAERS Safety Report 5707046-1 (Version None)
Quarter: 2008Q2

REPORT INFORMATION
  Report Type: 
  Country: None (occurrence: None)
  Receive Date: 20080416
  Receipt Date: 20080409
  Transmission Date: 20081010
  Serious: Yes (Life-Threatening, Hospitalization)
  Sender: FDA-Public Use
  Company Number: B0511809A

PATIENT
  Age: 80 Year
  Sex: Female
  Weight: 50 kg

DRUGS (19)
  1. PAXIL [Suspect]
     Indication: DEPRESSION
     Dosage: 10MG PER DAY
     Route: 048
     Dates: start: 20080305, end: 20080306
  2. FUROSEMIDE [Concomitant]
     Indication: CARDIAC FAILURE CHRONIC
     Dosage: 20MG PER DAY
     Route: 048
     Dates: end: 20080307
  3. ENALAPRIL MALEATE [Concomitant]
     Indication: HYPERTENSION
     Dosage: 5MG PER DAY
     Route: 048
     Dates: end: 20080307
  4. WARKMIN [Concomitant]
     Indication: OSTEOPOROSIS
     Dosage: 5MCG PER DAY
     Route: 048
     Dates: end: 20080307
  5. PREDONINE [Concomitant]
     Indication: RHEUMATOID ARTHRITIS
     Dosage: 1MG PER DAY
     Route: 048
     Dates: end: 20080307
  6. PREDNISOLONE [Concomitant]
     Indication: RHEUMATOID ARTHRITIS
     Dosage: 2MG PER DAY
     Route: 048
     Dates: end: 20080307
  7. CARDENALIN [Concomitant]
     Indication: HYPERTENSION
     Dosage: 2MG PER DAY
     Route: 048
     Dates: end: 20080307
  8. ARTIST [Concomitant]
     Indication: CARDIAC FAILURE CHRONIC
     Dosage: 5MG PER DAY
     Route: 048
     Dates: end: 20080307
  9. GASMOTIN [Concomitant]
     Indication: DYSPEPSIA
     Dosage: 15MG PER DAY
     Route: 048
     Dates: end: 20080307
  10. MAGNESIUM OXIDE [Concomitant]
     Indication: CONSTIPATION
     Dosage: .99G PER DAY
     Route: 048
     Dates: end: 20080307
  11. LOXONIN [Concomitant]
     Indication: RHEUMATOID ARTHRITIS
     Dosage: 180MG PER DAY
     Route: 048
     Dates: end: 20080307
  12. MARZULENE-S [Concomitant]
     Indication: GASTRITIS
     Dosage: 1.5G PER DAY
     Route: 048
     Dates: end: 20080307
  13. GLAKAY [Concomitant]
     Indication: OSTEOPOROSIS
     Dosage: 45MG PER DAY
     Route: 048
     Dates: end: 20080307
  14. CRESTOR [Concomitant]
     Dosage: 2.5MG PER DAY
     Route: 048
     Dates: end: 20080307
  15. CHINESE MEDICINE [Concomitant]
     Indication: CONSTIPATION
     Dosage: 5G PER DAY
     Route: 048
     Dates: end: 20080307
  16. TAKEPRON [Concomitant]
     Indication: GASTRITIS
     Dosage: 30MG PER DAY
     Route: 048
     Dates: start: 20080305, end: 20080307
  17. ALTAT [Concomitant]
     Indication: GASTRITIS
     Dosage: 25MG PER DAY
     Route: 048
     Dates: end: 20080304
  18. OMEPRAL [Concomitant]
     Indication: GASTRITIS
     Dates: start: 20080305
  19. GRAMALIL [Concomitant]
     Route: 048
     Dates: start: 20080309

REACTIONS (28)
  - ANURIA [None]
  - ASPARTATE AMINOTRANSFERASE INCREASED [None]
  - BLOOD CHLORIDE DECREASED [None]
  - BLOOD CREATINE PHOSPHOKINASE INCREASED [None]
  - BLOOD CREATININE INCREASED [None]
  - BLOOD GLUCOSE INCREASED [None]
  - BLOOD POTASSIUM DECREASED [None]
  - BLOOD SODIUM DECREASED [None]
  - BLOOD UREA INCREASED [None]
  - BLOOD URIC ACID INCREASED [None]
  - C-REACTIVE PROTEIN INCREASED [None]
  - DELIRIUM [None]
  - EYELID FUNCTION DISORDER [None]
  - HEADACHE [None]
  - HYPERHIDROSIS [None]
  - INTERNATIONAL NORMALISED RATIO INCREASED [None]
  - MIOSIS [None]
  - NAUSEA [None]
  - PLATELET COUNT DECREASED [None]
  - PNEUMONIA [None]
  - PROTEIN TOTAL DECREASED [None]
  - PROTHROMBIN TIME PROLONGED [None]
  - RED BLOOD CELL COUNT DECREASED [None]
  - RENAL FAILURE ACUTE [None]
  - RHABDOMYOLYSIS [None]
  - SHOCK [None]
  - VOMITING [None]
  - WHITE BLOOD CELL COUNT INCREASED [None]
